FAERS Safety Report 7734692-6 (Version None)
Quarter: 2011Q3

REPORT INFORMATION
  Report Type: 
  Country: None (occurrence: None)
  Receive Date: 20110907
  Receipt Date: 20110826
  Transmission Date: 20111222
  Serious: No
  Sender: FDA-Public Use
  Company Number: CA-ELI_LILLY_AND_COMPANY-CA201108008100

PATIENT
  Sex: Male

DRUGS (26)
  1. ZYPREXA [Suspect]
     Dosage: 25 MG, EACH EVENING
  2. ZYPREXA ZYDIS [Suspect]
     Indication: SCHIZOAFFECTIVE DISORDER
     Dosage: 5 MG, UNK
  3. ASPIRIN [Concomitant]
  4. RISPERDAL [Concomitant]
  5. ZYPREXA [Suspect]
     Indication: SCHIZOAFFECTIVE DISORDER
     Dosage: 10 MG, BID
     Dates: start: 20000821, end: 20060101
  6. TRAZODONE HCL [Concomitant]
  7. LORAZEPAM [Concomitant]
  8. PROCYCLIDINE HYDROCHLORIDE 2MG TAB [Concomitant]
  9. ZYPREXA ZYDIS [Suspect]
     Dosage: 10 MG, UNK
  10. BENZTROPINE MESYLATE [Concomitant]
  11. ZYPREXA ZYDIS [Suspect]
     Dosage: 20 MG, PRN
  12. DIVALPROEX SODIUM [Concomitant]
  13. HALOPERIDOL [Concomitant]
  14. SEROQUEL [Concomitant]
  15. ALTACE [Concomitant]
  16. ZOPICLONE [Concomitant]
  17. GABAPENTIN [Concomitant]
  18. NOZINAN [Concomitant]
  19. FLUVOXAMINE MALEATE [Concomitant]
  20. ZYPREXA [Suspect]
     Dosage: 15 MG, EACH EVENING
  21. ZYPREXA [Suspect]
     Dosage: 30 MG, EACH EVENING
  22. CRESTOR [Concomitant]
  23. ZOLOFT [Concomitant]
  24. ZYPREXA ZYDIS [Suspect]
     Dosage: 40 MG, QD
  25. CLONAZEPAM [Concomitant]
  26. LOXAPINE HCL [Concomitant]

REACTIONS (7)
  - ALANINE AMINOTRANSFERASE INCREASED [None]
  - PLATELET COUNT DECREASED [None]
  - OVERDOSE [None]
  - TYPE 2 DIABETES MELLITUS [None]
  - ERECTILE DYSFUNCTION [None]
  - GAMMA-GLUTAMYLTRANSFERASE INCREASED [None]
  - WEIGHT INCREASED [None]
